FAERS Safety Report 10420519 (Version 1)
Quarter: 2014Q2

REPORT INFORMATION
  Report Type: Spontaneous
  Country: US (occurrence: None)
  Receive Date: 20140618
  Receipt Date: 20140618
  Transmission Date: 20141212
  Serious: Yes (Hospitalization, Other)
  Sender: FDA-Public Use
  Company Number: 113083

PATIENT
  Sex: Male
  Weight: 59 kg

DRUGS (2)
  1. LACOSAMIDE [Suspect]
     Indication: EPILEPSY
     Route: 048
  2. DEPAKOTE [Concomitant]

REACTIONS (5)
  - Convulsion [None]
  - Generalised tonic-clonic seizure [None]
  - Weight increased [None]
  - Agitation [None]
  - Memory impairment [None]
